FAERS Safety Report 20532485 (Version 1)
Quarter: 2022Q1

REPORT INFORMATION
  Report Type: Spontaneous
  Country: US (occurrence: None)
  Receive Date: 20220228
  Receipt Date: 20220228
  Transmission Date: 20220423
  Serious: Yes (Life-Threatening, Hospitalization, Disabling)
  Sender: FDA-Public Use
  Company Number: None

PATIENT
  Age: 46 Year
  Sex: Female
  Weight: 58.5 kg

DRUGS (9)
  1. OLANZAPINE [Suspect]
     Active Substance: OLANZAPINE
     Indication: Depression
     Route: 048
     Dates: start: 20201115, end: 20210214
  2. LATUDA [Suspect]
     Active Substance: LURASIDONE HYDROCHLORIDE
     Indication: Depression
     Dosage: FREQUENCY : TWICE A DAY;?
     Route: 048
     Dates: end: 20210930
  3. CLONOPIN [Concomitant]
     Active Substance: CLONAZEPAM
  4. Multi-vitmain [Concomitant]
  5. VITAMIN C [Concomitant]
     Active Substance: ASCORBIC ACID
  6. VITAMIN D [Concomitant]
     Active Substance: VITAMIN D NOS
  7. MAGNESIUM [Concomitant]
     Active Substance: MAGNESIUM
  8. SAMBUCOL [Concomitant]
     Active Substance: BRYONIA ALBA ROOT\GELSEMIUM SEMPERVIRENS ROOT\SAMBUCUS NIGRA FLOWERING TOP\SULFUR\ZINC GLUCONATE
  9. Triple Omega [Concomitant]

REACTIONS (7)
  - Akathisia [None]
  - Emotional distress [None]
  - Suicidal behaviour [None]
  - Suicide attempt [None]
  - Drug intolerance [None]
  - Brain neoplasm [None]
  - Tardive dyskinesia [None]

NARRATIVE: CASE EVENT DATE: 20210201
